FAERS Safety Report 25571790 (Version 1)
Quarter: 2025Q3

REPORT INFORMATION
  Report Type: Spontaneous
  Country: US (occurrence: US)
  Receive Date: 20250717
  Receipt Date: 20250717
  Transmission Date: 20251021
  Serious: Yes (Other)
  Sender: PFIZER
  Company Number: US-PFIZER INC-202500143810

PATIENT
  Age: 68 Year
  Sex: Female

DRUGS (1)
  1. XELJANZ XR [Suspect]
     Active Substance: TOFACITINIB CITRATE

REACTIONS (6)
  - Cerebral thrombosis [Unknown]
  - Nervous system disorder [Unknown]
  - Thrombosis [Unknown]
  - Dementia [Unknown]
  - Condition aggravated [Unknown]
  - Arthralgia [Unknown]
